FAERS Safety Report 6259321-2 (Version None)
Quarter: 2009Q3

REPORT INFORMATION
  Report Type: 
  Country: None (occurrence: None)
  Receive Date: 20090702
  Receipt Date: 20090617
  Transmission Date: 20100115
  Serious: Yes (Death)
  Sender: FDA-Public Use
  Company Number: 2008AL011093

PATIENT
  Age: 55 Year
  Sex: Female

DRUGS (6)
  1. DIGOXIN [Suspect]
     Dosage: PO
     Route: 048
     Dates: start: 20051108, end: 20061005
  2. SYNTHROID [Concomitant]
  3. LOTREL [Concomitant]
  4. LEXAPRO [Concomitant]
  5. SEROQUEL [Concomitant]
  6. LITHIUM [Concomitant]

REACTIONS (26)
  - ANXIETY [None]
  - ARRHYTHMIA [None]
  - ASTHENIA [None]
  - BLOOD PRESSURE DECREASED [None]
  - CARDIAC FAILURE CONGESTIVE [None]
  - CHEST DISCOMFORT [None]
  - DECREASED APPETITE [None]
  - DEFORMITY [None]
  - DIARRHOEA [None]
  - DYSPNOEA [None]
  - ECONOMIC PROBLEM [None]
  - ELECTROCARDIOGRAM ABNORMAL [None]
  - FATIGUE [None]
  - HEART RATE IRREGULAR [None]
  - HYPERTENSION [None]
  - INJURY [None]
  - NAUSEA [None]
  - OEDEMA PERIPHERAL [None]
  - PAIN [None]
  - PARTNER STRESS [None]
  - SURGERY [None]
  - SYNCOPE [None]
  - THERAPEUTIC AGENT TOXICITY [None]
  - VISUAL IMPAIRMENT [None]
  - VOMITING [None]
  - WEIGHT DECREASED [None]
